FAERS Safety Report 8786936 (Version 2)
Quarter: 2012Q4

REPORT INFORMATION
  Report Type: 
  Country: US (occurrence: US)
  Receive Date: 20120914
  Receipt Date: 20121116
  Transmission Date: 20130627
  Serious: No
  Sender: FDA-Public Use
  Company Number: US-009507513-2011SP048014

PATIENT
  Sex: Female
  Weight: 136.8 kg

DRUGS (2)
  1. IMPLANON [Suspect]
     Indication: CONTRACEPTION
     Dosage: 3 YEARS IMPLANT
     Dates: start: 20091028
  2. LEVOTHYROXINE SODIUM [Concomitant]
     Indication: PRODUCT USED FOR UNKNOWN INDICATION

REACTIONS (6)
  - Breast haemorrhage [Unknown]
  - Medical device complication [Unknown]
  - Menstruation irregular [Unknown]
  - Injection site pain [Unknown]
  - Breast pain [Unknown]
  - Amenorrhoea [Recovered/Resolved]
